FAERS Safety Report 9979464 (Version 2)
Quarter: 2014Q1

REPORT INFORMATION
  Report Type: Report from Study
  Country: US (occurrence: US)
  Receive Date: 20140306
  Receipt Date: 20140306
  Transmission Date: 20141002
  Serious: No
  Sender: FDA-Public Use
  Company Number: US-ABBVIE-13P-163-1103281-00

PATIENT
  Age: 39 Year
  Sex: Female

DRUGS (13)
  1. HUMIRA [Suspect]
     Indication: COLITIS ULCERATIVE
     Dates: start: 20130528, end: 20130529
  2. HUMIRA [Suspect]
  3. ASACOL HD [Concomitant]
     Indication: COLITIS ULCERATIVE
  4. PHILLIPS COLON HEALTH [Concomitant]
     Indication: COLITIS ULCERATIVE
     Dosage: DAILY
  5. CALCIUM + D3 [Concomitant]
     Indication: OSTEOPOROSIS
  6. ADVAIR [Concomitant]
     Indication: ASTHMA
  7. VITAMIN D [Concomitant]
     Indication: VITAMIN SUPPLEMENTATION
  8. TYLENOL [Concomitant]
     Indication: PRODUCT USED FOR UNKNOWN INDICATION
  9. MOTRIN [Concomitant]
     Indication: PRODUCT USED FOR UNKNOWN INDICATION
  10. PROAIR [Concomitant]
     Indication: ASTHMA
  11. PREDNISONE [Concomitant]
     Indication: PRODUCT USED FOR UNKNOWN INDICATION
     Dosage: WEANING
  12. PREDNISONE [Concomitant]
     Dosage: WEANING
  13. VITAMIN D 2000 [Concomitant]
     Indication: SUPPLEMENTATION THERAPY

REACTIONS (10)
  - Fatigue [Not Recovered/Not Resolved]
  - Injection site bruising [Not Recovered/Not Resolved]
  - Injection site swelling [Not Recovered/Not Resolved]
  - Pain [Not Recovered/Not Resolved]
  - Headache [Not Recovered/Not Resolved]
  - Hypoaesthesia [Not Recovered/Not Resolved]
  - Local swelling [Recovered/Resolved]
  - Injection site pain [Recovered/Resolved]
  - Injection site pain [Recovered/Resolved]
  - Ligament sprain [Recovered/Resolved]
